FAERS Safety Report 7171072-9 (Version None)
Quarter: 2010Q4

REPORT INFORMATION
  Report Type: 
  Country: None (occurrence: None)
  Receive Date: 20101217
  Receipt Date: 20101214
  Transmission Date: 20110411
  Serious: Yes (Disabling)
  Sender: FDA-Public Use
  Company Number: GB-PFIZER INC-2010172287

PATIENT
  Age: 48 Year
  Sex: Male
  Weight: 95.45 kg

DRUGS (4)
  1. DOXYCYCLINE HYCLATE [Suspect]
     Dosage: UNK
     Dates: start: 20101203, end: 20101201
  2. BENDROFLUMETHIAZIDE [Concomitant]
     Dosage: UNK
     Dates: start: 20101203, end: 20101201
  3. CANDESARTAN [Concomitant]
     Dosage: UNK
     Dates: start: 20100920, end: 20101018
  4. AMLODIPINE MALEATE [Concomitant]
     Dosage: UNK MG, UNK
     Dates: start: 20100920, end: 20101018

REACTIONS (3)
  - DEPERSONALISATION [None]
  - DEREALISATION [None]
  - DYSARTHRIA [None]
